FAERS Safety Report 4744643-4 (Version None)
Quarter: 2005Q3

REPORT INFORMATION
  Report Type: 
  Country: None (occurrence: None)
  Receive Date: 20050812
  Receipt Date: 20050812
  Transmission Date: 20060218
  Serious: Yes (Life-Threatening, Hospitalization)
  Sender: FDA-Public Use
  Company Number: None

PATIENT
  Age: 41 Year
  Sex: Male
  Weight: 91.4 kg

DRUGS (3)
  1. ZYPREXA [Suspect]
     Indication: BIPOLAR DISORDER
     Dosage: 25MG  DAILY  ORAL
     Route: 048
     Dates: start: 20050411, end: 20050511
  2. ZYPREXA [Suspect]
     Indication: SCHIZOPHRENIA
     Dosage: 25MG  DAILY  ORAL
     Route: 048
     Dates: start: 20050411, end: 20050511
  3. LAMICTAL [Concomitant]

REACTIONS (9)
  - ASTHENIA [None]
  - BLOOD GLUCOSE INCREASED [None]
  - DECREASED APPETITE [None]
  - DIABETIC KETOACIDOSIS [None]
  - DRY MOUTH [None]
  - POLYDIPSIA [None]
  - POLYURIA [None]
  - VISION BLURRED [None]
  - WEIGHT DECREASED [None]
